FAERS Safety Report 8908686 (Version 3)
Quarter: 2012Q4

REPORT INFORMATION
  Report Type: 
  Country: US (occurrence: US)
  Receive Date: 20121114
  Receipt Date: 20121213
  Transmission Date: 20130627
  Serious: No
  Sender: FDA-Public Use
  Company Number: US-PFIZER INC-2012282554

PATIENT
  Age: 63 Year
  Sex: Female
  Weight: 67.57 kg

DRUGS (15)
  1. LYRICA [Suspect]
     Indication: NEUROPATHY PERIPHERAL
     Dosage: 100 mg, 2x/day
     Route: 048
     Dates: start: 20120301, end: 20121102
  2. LYRICA [Suspect]
     Dosage: 50 mg (1 pill), 2x/day
     Route: 048
     Dates: start: 20121105
  3. OMEPRAZOLE [Concomitant]
     Dosage: 20 mg, daily (1 pill)
     Dates: start: 20101206
  4. FLONASE [Concomitant]
     Dosage: 50 ug, 1 spray in both naros every day
     Dates: start: 20111031
  5. SINGULAIR [Concomitant]
     Dosage: 10 mg, daily (1 tablet)
     Dates: start: 20110811
  6. LORATADINE [Concomitant]
     Dosage: 10 mg, every day
     Dates: start: 20081001
  7. TRAMADOL HYDROCHLORIDE [Concomitant]
     Dosage: 10 mg, 1 pill every 8 hours as needed
     Dates: start: 20091119
  8. LORAZEPAM [Concomitant]
     Dosage: 1 mg, 2x/day
     Dates: start: 20100920
  9. AMBIEN [Concomitant]
     Dosage: 10 mg (/tablet), as needed
     Dates: start: 20080801
  10. CRESTOR [Concomitant]
     Dosage: 40 mg, 1 pill every night
     Dates: start: 20110625
  11. PROPRANOLOL HYDROCHLORIDE [Concomitant]
     Dosage: 20 mg, 3x/day
     Route: 048
     Dates: start: 20100204
  12. ASACOL HD [Concomitant]
     Dosage: 800 mg TBEC 1 pill, 2x/day
     Dates: start: 20120106
  13. EVOXAC [Concomitant]
     Indication: DRY MOUTH
     Dosage: 30 mg, 3x/day
     Dates: start: 20120329
  14. EVISTA [Concomitant]
     Dosage: 60 mg tablet, daily
     Dates: start: 20120830
  15. LEVODOPA-CARBIDOPA [Concomitant]
     Dosage: 10-100 mg 1pill, daily
     Dates: start: 20121102

REACTIONS (1)
  - Fatigue [Not Recovered/Not Resolved]
